FAERS Safety Report 6811399-0 (Version None)
Quarter: 2010Q2

REPORT INFORMATION
  Report Type: 
  Country: None (occurrence: None)
  Receive Date: 20100630
  Receipt Date: 20100517
  Transmission Date: 20101027
  Serious: No
  Sender: FDA-Public Use
  Company Number: US-AMGEN-KDL401453

PATIENT
  Age: 87 Year
  Sex: Male

DRUGS (12)
  1. PROCRIT [Suspect]
     Indication: DRUG USE FOR UNKNOWN INDICATION
  2. LISINOPRIL [Concomitant]
  3. VITAMINS [Concomitant]
  4. PRAZOSIN HCL [Concomitant]
  5. HYDROCODONE [Concomitant]
  6. UNSPECIFIED ANTIANXIETY AGENT [Concomitant]
  7. UNSPECIFIED MEDICATION [Concomitant]
  8. HYDROCHLOROTHIAZIDE [Concomitant]
     Route: 048
  9. OMEPRAZOLE [Concomitant]
  10. FISH OIL [Concomitant]
  11. MULTI-VITAMINS [Concomitant]
  12. CALCIUM CARBONATE [Concomitant]

REACTIONS (7)
  - ANAEMIA [None]
  - DYSPHAGIA [None]
  - FATIGUE [None]
  - FEELING COLD [None]
  - OESOPHAGEAL DISORDER [None]
  - PRURITUS [None]
  - RASH [None]
